FAERS Safety Report 9163877 (Version 1)
Quarter: 2013Q1

REPORT INFORMATION
  Report Type: Spontaneous
  Country: US (occurrence: US)
  Receive Date: 20130314
  Receipt Date: 20130314
  Transmission Date: 20140127
  Serious: Yes (Hospitalization, Other)
  Sender: FDA-Public Use
  Company Number: US-BAXTER-2013BAX009605

PATIENT
  Age: 77 Year
  Sex: Male

DRUGS (1)
  1. GLYCINE [Suspect]
     Indication: BLADDER IRRIGATION
     Route: 065

REACTIONS (2)
  - Bladder perforation [Recovering/Resolving]
  - Electrolyte imbalance [Recovering/Resolving]
